FAERS Safety Report 7458081-7 (Version None)
Quarter: 2011Q2

REPORT INFORMATION
  Report Type: 
  Country: None (occurrence: None)
  Receive Date: 20110504
  Receipt Date: 20110419
  Transmission Date: 20111010
  Serious: Yes (Other)
  Sender: FDA-Public Use
  Company Number: AU-GENENTECH-317493

PATIENT
  Age: 36 Year
  Sex: Female

DRUGS (5)
  1. PREDNISOLONE [Concomitant]
     Dosage: 75 MG, QD
  2. PREDNISOLONE [Concomitant]
     Dosage: 100 MG, QD
  3. PREDNISOLONE [Concomitant]
     Indication: ASTHMA
     Dosage: 50 MG, QD
  4. PREDNISOLONE [Concomitant]
     Dosage: 20 MG, QD
  5. XOLAIR [Suspect]
     Indication: ASTHMA

REACTIONS (3)
  - EOSINOPHILIA [None]
  - LUNG INFILTRATION [None]
  - ASTHMA [None]
